FAERS Safety Report 5005035-6 (Version None)
Quarter: 2006Q2

REPORT INFORMATION
  Report Type: 
  Country: None (occurrence: None)
  Receive Date: 20060516
  Receipt Date: 20060516
  Transmission Date: 20061013
  Serious: Yes (Death)
  Sender: FDA-Public Use
  Company Number: None

PATIENT
  Age: 79 Year
  Sex: Male
  Weight: 49.8957 kg

DRUGS (7)
  1. MEGACE [Suspect]
     Indication: LUNG NEOPLASM MALIGNANT
     Dosage: 800MG/DAY
  2. MEGACE [Suspect]
     Indication: WEIGHT DECREASED
     Dosage: 800MG/DAY
  3. DOCETAXEL [Concomitant]
  4. ERBITUX [Concomitant]
  5. ADVOIR [Concomitant]
  6. COMBIVENT [Concomitant]
  7. OXYGEN [Concomitant]

REACTIONS (11)
  - ABDOMINAL DISTENSION [None]
  - ASTHENIA [None]
  - BLOOD CREATININE DECREASED [None]
  - BLOOD GLUCOSE INCREASED [None]
  - FOOD INTOLERANCE [None]
  - HAEMOGLOBIN DECREASED [None]
  - LABORATORY TEST ABNORMAL [None]
  - NAUSEA [None]
  - PNEUMOTHORAX [None]
  - VOMITING [None]
  - WHITE BLOOD CELL COUNT INCREASED [None]
